FAERS Safety Report 19241436 (Version 1)
Quarter: 2021Q2

REPORT INFORMATION
  Report Type: Spontaneous
  Country: US (occurrence: US)
  Receive Date: 20210510
  Receipt Date: 20210510
  Transmission Date: 20210717
  Serious: Yes (Other)
  Sender: FDA-Public Use
  Company Number: None

PATIENT
  Age: 42 Year
  Sex: Female
  Weight: 63.96 kg

DRUGS (1)
  1. EMEND [Suspect]
     Active Substance: APREPITANT
     Indication: COLON CANCER
     Dates: start: 20210510, end: 20210510

REACTIONS (4)
  - Dyspnoea [None]
  - Heart rate increased [None]
  - Flushing [None]
  - Blood pressure increased [None]

NARRATIVE: CASE EVENT DATE: 20210510
